FAERS Safety Report 19571635 (Version 1)
Quarter: 2021Q3

REPORT INFORMATION
  Report Type: Report from Study
  Country: AU (occurrence: AU)
  Receive Date: 20210715
  Receipt Date: 20210715
  Transmission Date: 20211014
  Serious: Yes (Hospitalization)
  Sender: FDA-Public Use
  Company Number: AU-JNJFOC-20210720819

PATIENT
  Age: 58 Year
  Sex: Female
  Weight: 74 kg

DRUGS (4)
  1. REMICADE [Suspect]
     Active Substance: INFLIXIMAB
     Indication: CROHN^S DISEASE
     Route: 042
     Dates: start: 20210514, end: 20210514
  2. RABEPRAZOLE [Concomitant]
     Active Substance: RABEPRAZOLE
     Indication: GASTROOESOPHAGEAL REFLUX DISEASE
     Route: 048
     Dates: start: 20210709, end: 20210709
  3. NOTEN [Concomitant]
     Active Substance: ATENOLOL
     Indication: HYPERTENSION
     Route: 048
     Dates: start: 20210709, end: 20210709
  4. MESALAZINE [Concomitant]
     Active Substance: MESALAMINE
     Indication: CROHN^S DISEASE
     Route: 048
     Dates: start: 20210709, end: 20210709

REACTIONS (4)
  - Skin laceration [Recovering/Resolving]
  - Product use issue [Unknown]
  - Off label use [Unknown]
  - Septic arthritis staphylococcal [Recovering/Resolving]

NARRATIVE: CASE EVENT DATE: 2021
